FAERS Safety Report 5676389-2 (Version None)
Quarter: 2008Q1

REPORT INFORMATION
  Report Type: 
  Country: None (occurrence: None)
  Receive Date: 20080321
  Receipt Date: 20080311
  Transmission Date: 20080703
  Serious: Yes (Other)
  Sender: FDA-Public Use
  Company Number: FR-PFIZER INC-2008023388

PATIENT
  Age: 43 Year
  Sex: Female

DRUGS (1)
  1. CHAMPIX [Suspect]
     Indication: SMOKING CESSATION THERAPY

REACTIONS (10)
  - ABNORMAL DREAMS [None]
  - ARTHRALGIA [None]
  - DEPRESSION [None]
  - HEADACHE [None]
  - HYPERSENSITIVITY [None]
  - JOINT SWELLING [None]
  - NAUSEA [None]
  - OEDEMA PERIPHERAL [None]
  - SUICIDAL IDEATION [None]
  - URTICARIA [None]
